FAERS Safety Report 8151651-2 (Version None)
Quarter: 2012Q1

REPORT INFORMATION
  Report Type: 
  Country: None (occurrence: None)
  Receive Date: 20120220
  Receipt Date: 20120209
  Transmission Date: 20120608
  Serious: Yes (Other)
  Sender: FDA-Public Use
  Company Number: US-ROCHE-1038790

PATIENT
  Sex: Female

DRUGS (3)
  1. RITUXAN [Suspect]
     Indication: NON-HODGKIN'S LYMPHOMA
     Route: 065
     Dates: start: 20080101
  2. BENDAMUSTINE [Concomitant]
  3. RITUXAN [Suspect]
     Route: 065
     Dates: end: 20120115

REACTIONS (2)
  - PULMONARY TOXICITY [None]
  - DYSPNOEA [None]
